FAERS Safety Report 4616141-X (Version None)
Quarter: 2005Q1

REPORT INFORMATION
  Report Type: 
  Country: None (occurrence: None)
  Receive Date: 20050321
  Receipt Date: 20050308
  Transmission Date: 20050727
  Serious: Yes (Disabling)
  Sender: FDA-Public Use
  Company Number: MK200503-0119-1

PATIENT
  Age: 1 Day
  Sex: Female

DRUGS (3)
  1. ANAFRANIL CAP [Suspect]
     Dosage: IN UTERO
  2. LARGACTIL [Suspect]
  3. IMOVANE [Suspect]

REACTIONS (11)
  - CARDIAC VENTRICULAR DISORDER [None]
  - DRUG EXPOSURE DURING PREGNANCY [None]
  - EXTRAPYRAMIDAL DISORDER [None]
  - FACIAL DYSMORPHISM [None]
  - FOETAL DISORDER [None]
  - GROWTH RETARDATION [None]
  - HYPOGLYCAEMIA NEONATAL [None]
  - JOINT HYPEREXTENSION [None]
  - NEONATAL DISORDER [None]
  - OPISTHOTONUS [None]
  - ULTRASOUND SCAN ABNORMAL [None]
